FAERS Safety Report 20052119 (Version 1)
Quarter: 2021Q4

REPORT INFORMATION
  Report Type: Spontaneous
  Country: US (occurrence: US)
  Receive Date: 20211110
  Receipt Date: 20211110
  Transmission Date: 20220304
  Serious: Yes (Other)
  Sender: FDA-Public Use
  Company Number: US-CADILA HEALTHCARE LIMITED-US-ZYDUS-071183

PATIENT

DRUGS (6)
  1. OLANZAPINE [Interacting]
     Active Substance: OLANZAPINE
     Indication: Schizoaffective disorder
     Dosage: UNK
     Route: 048
  2. OLANZAPINE [Interacting]
     Active Substance: OLANZAPINE
     Indication: Drug use disorder
     Dosage: 10 MILLIGRAM, BID
     Route: 048
  3. OLANZAPINE [Interacting]
     Active Substance: OLANZAPINE
     Dosage: 5MG IN THE MORNING AND 15MG IN THE EVENING
     Route: 048
  4. BUPRENORPHINE [Suspect]
     Active Substance: BUPRENORPHINE
     Indication: Schizoaffective disorder
     Dosage: 12 MILLIGRAM, QD
     Route: 065
  5. BUPRENORPHINE [Suspect]
     Active Substance: BUPRENORPHINE
     Indication: Drug use disorder
  6. HERBALS\PLANTAGO OVATA LEAF [Interacting]
     Active Substance: HERBALS\PLANTAGO OVATA LEAF
     Indication: Constipation
     Dosage: 3 GRAM, BID
     Route: 065

REACTIONS (3)
  - Drug interaction [Recovered/Resolved]
  - Constipation [Unknown]
  - Drug ineffective [Recovering/Resolving]
